FAERS Safety Report 4379777-X (Version None)
Quarter: 2004Q2

REPORT INFORMATION
  Report Type: 
  Country: None (occurrence: None)
  Receive Date: 20040614
  Receipt Date: 20040603
  Transmission Date: 20050107
  Serious: Yes (Life-Threatening)
  Sender: FDA-Public Use
  Company Number: STA-AE-04-MTX-250

PATIENT
  Age: 53 Year
  Sex: Female

DRUGS (4)
  1. METHOTREXATE [Suspect]
     Indication: RHEUMATOID ARTHRITIS
     Dosage: 70 MG 1X PER 1 WK, ORAL
     Route: 048
     Dates: start: 20031001, end: 20040101
  2. MELOXICAM (MELOXICAM) [Concomitant]
  3. ATENOLOL [Concomitant]
  4. HYDROXYCHLOROQUINE SULFATE [Concomitant]

REACTIONS (4)
  - ALOPECIA [None]
  - BLOOD DISORDER [None]
  - FEELING ABNORMAL [None]
  - MEDICATION ERROR [None]
